FAERS Safety Report 10386553 (Version 1)
Quarter: 2014Q3

REPORT INFORMATION
  Report Type: Spontaneous
  Country: US (occurrence: None)
  Receive Date: 20140814
  Receipt Date: 20140814
  Transmission Date: 20150326
  Serious: Yes (Hospitalization)
  Sender: FDA-Public Use
  Company Number: None

PATIENT
  Age: 59 Year
  Sex: Female
  Weight: 57.15 kg

DRUGS (10)
  1. TACROLIMUS. [Suspect]
     Active Substance: TACROLIMUS
  2. PREDNISONE. [Concomitant]
     Active Substance: PREDNISONE
  3. SULFAMETHOXAZOLE AND TRIMETHOPRIM [Suspect]
     Active Substance: SULFAMETHOXAZOLE\TRIMETHOPRIM
  4. ATENOLOL. [Concomitant]
     Active Substance: ATENOLOL
  5. CIPROFLOXACIN. [Concomitant]
     Active Substance: CIPROFLOXACIN
  6. LOSARTAN [Concomitant]
     Active Substance: LOSARTAN
  7. MYCOPHENOLATE MOFETIL (CELLCEPT) [Concomitant]
  8. ECULIZUMAB [Suspect]
     Active Substance: ECULIZUMAB
     Indication: RENAL TRANSPLANT
     Route: 042
     Dates: start: 20140805, end: 20140805
  9. HYDROCHLOROTHIAZIDE. [Concomitant]
     Active Substance: HYDROCHLOROTHIAZIDE
  10. VALGANCICLOVIR [Concomitant]
     Active Substance: VALGANCICLOVIR

REACTIONS (2)
  - Transplant rejection [None]
  - Blood creatinine increased [None]

NARRATIVE: CASE EVENT DATE: 20140812
